FAERS Safety Report 15556654 (Version 8)
Quarter: 2024Q3

REPORT INFORMATION
  Report Type: Spontaneous
  Country: RO (occurrence: None)
  Receive Date: 20181026
  Receipt Date: 20240710
  Transmission Date: 20241016
  Serious: Yes (Hospitalization, Other)
  Sender: ASTRAZENECA
  Company Number: 2018SF35672

PATIENT
  Age: 80 Year
  Sex: Male

DRUGS (92)
  1. CANDESARTAN CILEXETIL [Suspect]
     Active Substance: CANDESARTAN CILEXETIL
     Indication: Hypertension
     Dates: start: 2012
  2. ROSUVASTATIN [Suspect]
     Active Substance: ROSUVASTATIN
     Indication: Hypertension
  3. ROSUVASTATIN [Suspect]
     Active Substance: ROSUVASTATIN
     Indication: Acute coronary syndrome
  4. ROSUVASTATIN [Suspect]
     Active Substance: ROSUVASTATIN
     Indication: Syncope
  5. ROSUVASTATIN [Suspect]
     Active Substance: ROSUVASTATIN
     Indication: Intermittent claudication
  6. ROSUVASTATIN [Suspect]
     Active Substance: ROSUVASTATIN
     Indication: Dizziness
  7. ROSUVASTATIN [Suspect]
     Active Substance: ROSUVASTATIN
     Indication: Coronary artery disease
  8. ROSUVASTATIN [Suspect]
     Active Substance: ROSUVASTATIN
     Indication: Presyncope
  9. ROSUVASTATIN [Suspect]
     Active Substance: ROSUVASTATIN
     Indication: Blood pressure systolic
  10. ROSUVASTATIN [Suspect]
     Active Substance: ROSUVASTATIN
     Indication: Hypertension
     Dates: start: 2016
  11. ROSUVASTATIN [Suspect]
     Active Substance: ROSUVASTATIN
     Indication: Acute coronary syndrome
     Dates: start: 2016
  12. ROSUVASTATIN [Suspect]
     Active Substance: ROSUVASTATIN
     Indication: Syncope
     Dates: start: 2016
  13. ROSUVASTATIN [Suspect]
     Active Substance: ROSUVASTATIN
     Indication: Intermittent claudication
     Dates: start: 2016
  14. ROSUVASTATIN [Suspect]
     Active Substance: ROSUVASTATIN
     Indication: Dizziness
     Dates: start: 2016
  15. ROSUVASTATIN [Suspect]
     Active Substance: ROSUVASTATIN
     Indication: Coronary artery disease
     Dates: start: 2016
  16. ROSUVASTATIN [Suspect]
     Active Substance: ROSUVASTATIN
     Indication: Presyncope
     Dates: start: 2016
  17. ROSUVASTATIN [Suspect]
     Active Substance: ROSUVASTATIN
     Indication: Blood pressure systolic
     Dates: start: 2016
  18. RAMIPRIL [Suspect]
     Active Substance: RAMIPRIL
     Indication: Coronary artery disease
     Dates: start: 2016
  19. RAMIPRIL [Suspect]
     Active Substance: RAMIPRIL
     Indication: Acute coronary syndrome
     Dates: start: 2016
  20. MIDODRINE [Suspect]
     Active Substance: MIDODRINE
     Indication: Orthostatic hypertension
  21. MIDODRINE [Suspect]
     Active Substance: MIDODRINE
     Indication: Orthostatic hypertension
  22. LERCANIDIPINE [Suspect]
     Active Substance: LERCANIDIPINE
     Indication: Hypertension
     Route: 065
     Dates: start: 2012
  23. AMIODARONE [Suspect]
     Active Substance: AMIODARONE
     Indication: Product used for unknown indication
     Dosage: UNKNOWN
     Route: 065
     Dates: start: 2016
  24. AMIODARONE [Suspect]
     Active Substance: AMIODARONE
     Indication: Product used for unknown indication
     Dosage: UNKNOWN
     Route: 065
  25. BISOPROLOL [Suspect]
     Active Substance: BISOPROLOL\BISOPROLOL FUMARATE
     Indication: Hypertension
     Route: 065
     Dates: start: 2016
  26. BISOPROLOL [Suspect]
     Active Substance: BISOPROLOL\BISOPROLOL FUMARATE
     Indication: Acute coronary syndrome
     Route: 065
     Dates: start: 2016
  27. BISOPROLOL [Suspect]
     Active Substance: BISOPROLOL\BISOPROLOL FUMARATE
     Indication: Acute coronary syndrome
     Route: 065
     Dates: start: 2016
  28. CLOPIDOGREL [Suspect]
     Active Substance: CLOPIDOGREL BISULFATE
     Indication: Acute coronary syndrome
     Dates: start: 2016
  29. RIVAROXABAN [Suspect]
     Active Substance: RIVAROXABAN
     Dates: start: 2016
  30. RIVAROXABAN [Suspect]
     Active Substance: RIVAROXABAN
     Route: 065
  31. CARBIDOPA\LEVODOPA [Suspect]
     Active Substance: CARBIDOPA\LEVODOPA
     Indication: Parkinson^s disease
     Route: 065
     Dates: start: 2017
  32. RASAGILINE [Suspect]
     Active Substance: RASAGILINE\RASAGILINE MESYLATE
     Indication: Hypertension
     Route: 048
     Dates: start: 2017
  33. AMLODIPINE [Concomitant]
     Active Substance: AMLODIPINE BESYLATE
     Indication: Presyncope
     Route: 005
  34. AMLODIPINE [Concomitant]
     Active Substance: AMLODIPINE BESYLATE
     Indication: Intermittent claudication
     Route: 005
  35. AMLODIPINE [Concomitant]
     Active Substance: AMLODIPINE BESYLATE
     Indication: Blood pressure systolic
     Route: 005
  36. AMLODIPINE [Concomitant]
     Active Substance: AMLODIPINE BESYLATE
     Indication: Dizziness
     Route: 005
  37. AMLODIPINE [Concomitant]
     Active Substance: AMLODIPINE BESYLATE
     Indication: Presyncope
     Route: 005
  38. AMLODIPINE [Concomitant]
     Active Substance: AMLODIPINE BESYLATE
     Indication: Intermittent claudication
     Route: 005
  39. AMLODIPINE [Concomitant]
     Active Substance: AMLODIPINE BESYLATE
     Indication: Blood pressure systolic
     Route: 005
  40. AMLODIPINE [Concomitant]
     Active Substance: AMLODIPINE BESYLATE
     Indication: Dizziness
     Route: 005
  41. AMLODIPINE [Concomitant]
     Active Substance: AMLODIPINE BESYLATE
     Indication: Presyncope
     Route: 005
  42. AMLODIPINE [Concomitant]
     Active Substance: AMLODIPINE BESYLATE
     Indication: Intermittent claudication
     Route: 005
  43. AMLODIPINE [Concomitant]
     Active Substance: AMLODIPINE BESYLATE
     Indication: Blood pressure systolic
     Route: 005
  44. AMLODIPINE [Concomitant]
     Active Substance: AMLODIPINE BESYLATE
     Indication: Dizziness
     Route: 005
  45. AMLODIPINE [Concomitant]
     Active Substance: AMLODIPINE BESYLATE
     Indication: Presyncope
     Route: 005
  46. AMLODIPINE [Concomitant]
     Active Substance: AMLODIPINE BESYLATE
     Indication: Intermittent claudication
     Route: 005
  47. AMLODIPINE [Concomitant]
     Active Substance: AMLODIPINE BESYLATE
     Indication: Blood pressure systolic
     Route: 005
  48. AMLODIPINE [Concomitant]
     Active Substance: AMLODIPINE BESYLATE
     Indication: Dizziness
     Route: 005
  49. AMLODIPINE [Concomitant]
     Active Substance: AMLODIPINE BESYLATE
     Indication: Presyncope
     Route: 005
  50. AMLODIPINE [Concomitant]
     Active Substance: AMLODIPINE BESYLATE
     Indication: Intermittent claudication
     Route: 005
  51. AMLODIPINE [Concomitant]
     Active Substance: AMLODIPINE BESYLATE
     Indication: Blood pressure systolic
     Route: 005
  52. AMLODIPINE [Concomitant]
     Active Substance: AMLODIPINE BESYLATE
     Indication: Dizziness
     Route: 005
  53. AMLODIPINE [Concomitant]
     Active Substance: AMLODIPINE BESYLATE
     Indication: Presyncope
     Route: 005
  54. AMLODIPINE [Concomitant]
     Active Substance: AMLODIPINE BESYLATE
     Indication: Intermittent claudication
     Route: 005
  55. AMLODIPINE [Concomitant]
     Active Substance: AMLODIPINE BESYLATE
     Indication: Blood pressure systolic
     Route: 005
  56. AMLODIPINE [Concomitant]
     Active Substance: AMLODIPINE BESYLATE
     Indication: Dizziness
     Route: 005
  57. AMLODIPINE [Concomitant]
     Active Substance: AMLODIPINE BESYLATE
     Indication: Presyncope
  58. AMLODIPINE [Concomitant]
     Active Substance: AMLODIPINE BESYLATE
     Indication: Intermittent claudication
  59. AMLODIPINE [Concomitant]
     Active Substance: AMLODIPINE BESYLATE
     Indication: Blood pressure systolic
  60. AMLODIPINE [Concomitant]
     Active Substance: AMLODIPINE BESYLATE
     Indication: Dizziness
  61. LOSARTAN [Concomitant]
     Active Substance: LOSARTAN
     Indication: Presyncope
     Route: 005
  62. LOSARTAN [Concomitant]
     Active Substance: LOSARTAN
     Indication: Intermittent claudication
     Route: 005
  63. LOSARTAN [Concomitant]
     Active Substance: LOSARTAN
     Indication: Blood pressure systolic
     Route: 005
  64. LOSARTAN [Concomitant]
     Active Substance: LOSARTAN
     Indication: Dizziness
     Route: 005
  65. LOSARTAN [Concomitant]
     Active Substance: LOSARTAN
     Indication: Presyncope
     Route: 005
  66. LOSARTAN [Concomitant]
     Active Substance: LOSARTAN
     Indication: Intermittent claudication
     Route: 005
  67. LOSARTAN [Concomitant]
     Active Substance: LOSARTAN
     Indication: Blood pressure systolic
     Route: 005
  68. LOSARTAN [Concomitant]
     Active Substance: LOSARTAN
     Indication: Dizziness
     Route: 005
  69. LOSARTAN [Concomitant]
     Active Substance: LOSARTAN
     Indication: Presyncope
     Route: 005
  70. LOSARTAN [Concomitant]
     Active Substance: LOSARTAN
     Indication: Intermittent claudication
     Route: 005
  71. LOSARTAN [Concomitant]
     Active Substance: LOSARTAN
     Indication: Blood pressure systolic
     Route: 005
  72. LOSARTAN [Concomitant]
     Active Substance: LOSARTAN
     Indication: Dizziness
     Route: 005
  73. LOSARTAN [Concomitant]
     Active Substance: LOSARTAN
     Indication: Presyncope
     Route: 005
  74. LOSARTAN [Concomitant]
     Active Substance: LOSARTAN
     Indication: Intermittent claudication
     Route: 005
  75. LOSARTAN [Concomitant]
     Active Substance: LOSARTAN
     Indication: Blood pressure systolic
     Route: 005
  76. LOSARTAN [Concomitant]
     Active Substance: LOSARTAN
     Indication: Dizziness
     Route: 005
  77. LOSARTAN [Concomitant]
     Active Substance: LOSARTAN
     Indication: Presyncope
     Route: 005
  78. LOSARTAN [Concomitant]
     Active Substance: LOSARTAN
     Indication: Intermittent claudication
     Route: 005
  79. LOSARTAN [Concomitant]
     Active Substance: LOSARTAN
     Indication: Blood pressure systolic
     Route: 005
  80. LOSARTAN [Concomitant]
     Active Substance: LOSARTAN
     Indication: Dizziness
     Route: 005
  81. LOSARTAN [Concomitant]
     Active Substance: LOSARTAN
     Indication: Presyncope
     Route: 005
  82. LOSARTAN [Concomitant]
     Active Substance: LOSARTAN
     Indication: Intermittent claudication
     Route: 005
  83. LOSARTAN [Concomitant]
     Active Substance: LOSARTAN
     Indication: Blood pressure systolic
     Route: 005
  84. LOSARTAN [Concomitant]
     Active Substance: LOSARTAN
     Indication: Dizziness
     Route: 005
  85. LOSARTAN [Concomitant]
     Active Substance: LOSARTAN
     Indication: Presyncope
  86. LOSARTAN [Concomitant]
     Active Substance: LOSARTAN
     Indication: Intermittent claudication
  87. LOSARTAN [Concomitant]
     Active Substance: LOSARTAN
     Indication: Blood pressure systolic
  88. LOSARTAN [Concomitant]
     Active Substance: LOSARTAN
     Indication: Dizziness
  89. OMEPRAZOLE [Concomitant]
     Active Substance: OMEPRAZOLE
     Indication: Presyncope
  90. OMEPRAZOLE [Concomitant]
     Active Substance: OMEPRAZOLE
     Indication: Intermittent claudication
  91. OMEPRAZOLE [Concomitant]
     Active Substance: OMEPRAZOLE
     Indication: Blood pressure systolic
  92. OMEPRAZOLE [Concomitant]
     Active Substance: OMEPRAZOLE
     Indication: Dizziness

REACTIONS (14)
  - Presyncope [Recovered/Resolved]
  - Syncope [Recovered/Resolved with Sequelae]
  - Dizziness [Recovered/Resolved]
  - Blood pressure systolic abnormal [Unknown]
  - Intermittent claudication [Unknown]
  - Supine hypertension [Recovering/Resolving]
  - Orthostatic hypotension [Recovered/Resolved]
  - Abdominal pain [Unknown]
  - Mesenteric artery thrombosis [Unknown]
  - Carotid artery stenosis [Unknown]
  - Atrial fibrillation [Recovered/Resolved]
  - Acute coronary syndrome [Unknown]
  - Peripheral artery occlusion [Unknown]
  - Peripheral artery stenosis [Unknown]

NARRATIVE: CASE EVENT DATE: 20150101
